FAERS Safety Report 21891068 (Version 2)
Quarter: 2023Q1

REPORT INFORMATION
  Report Type: Spontaneous
  Country: US (occurrence: US)
  Receive Date: 20230120
  Receipt Date: 20230124
  Transmission Date: 20230417
  Serious: No
  Sender: FDA-Public Use
  Company Number: US-SANOFI-01451373

PATIENT
  Age: 69 Year
  Sex: Female

DRUGS (1)
  1. LANTUS SOLOSTAR [Suspect]
     Active Substance: INSULIN GLARGINE
     Indication: Diabetes mellitus
     Dosage: 55U/15U BID

REACTIONS (3)
  - Ligament sprain [Unknown]
  - Inappropriate schedule of product administration [Unknown]
  - Accidental exposure to product [Unknown]
